FAERS Safety Report 8991203 (Version 2)
Quarter: 2013Q1

REPORT INFORMATION
  Report Type: Spontaneous
  Country: US (occurrence: US)
  Receive Date: 20121231
  Receipt Date: 20130220
  Transmission Date: 20140127
  Serious: No
  Sender: FDA-Public Use
  Company Number: US-009507513-1212USA008610

PATIENT
  Sex: Female

DRUGS (1)
  1. NEXPLANON [Suspect]
     Dosage: 1 DF, UNK
     Route: 059
     Dates: end: 20130107

REACTIONS (2)
  - Device breakage [Unknown]
  - No adverse event [Unknown]
